FAERS Safety Report 11315039 (Version 1)
Quarter: 2015Q3

REPORT INFORMATION
  Report Type: Spontaneous
  Country: US (occurrence: US)
  Receive Date: 20150727
  Receipt Date: 20150727
  Transmission Date: 20151125
  Serious: No
  Sender: FDA-Public Use
  Company Number: US-PFIZER INC-2015244900

PATIENT
  Age: 75 Year
  Sex: Male

DRUGS (1)
  1. XANAX XR [Suspect]
     Active Substance: ALPRAZOLAM
     Indication: PANIC ATTACK
     Dosage: 2 MG (BY CUTTING THE TABLETS IN HALVES), UNK

REACTIONS (2)
  - Intentional product misuse [Unknown]
  - Hyperhidrosis [Unknown]
